FAERS Safety Report 19684642 (Version 1)
Quarter: 2021Q3

REPORT INFORMATION
  Report Type: Spontaneous
  Country: US (occurrence: US)
  Receive Date: 20210810
  Receipt Date: 20210810
  Transmission Date: 20211014
  Serious: Yes (Hospitalization)
  Sender: FDA-Public Use
  Company Number: None

PATIENT
  Age: 35 Year
  Sex: Male
  Weight: 155.5 kg

DRUGS (5)
  1. MERCAPTOPURINE. [Suspect]
     Active Substance: MERCAPTOPURINE
     Dates: end: 20210804
  2. DAUNORUBICIN [Suspect]
     Active Substance: DAUNORUBICIN
     Dates: end: 20210722
  3. ONCASPAR [Suspect]
     Active Substance: PEGASPARGASE
     Dates: end: 20210805
  4. VINCRISTINE SULFATE. [Suspect]
     Active Substance: VINCRISTINE SULFATE
     Dates: end: 20210805
  5. CYTARABINE. [Suspect]
     Active Substance: CYTARABINE
     Dates: end: 20210801

REACTIONS (6)
  - Atelectasis [None]
  - Anaemia [None]
  - Pallor [None]
  - Dyspnoea [None]
  - Pleural effusion [None]
  - Lung consolidation [None]

NARRATIVE: CASE EVENT DATE: 20210808
